FAERS Safety Report 8870229 (Version 1)
Quarter: 2012Q4

REPORT INFORMATION
  Report Type: Spontaneous
  Country: US (occurrence: None)
  Receive Date: 20121025
  Receipt Date: 20121025
  Transmission Date: 20130627
  Serious: Yes (Life-Threatening, Hospitalization, Other)
  Sender: FDA-Public Use
  Company Number: None

PATIENT
  Age: 35 Year
  Sex: Female
  Weight: 122.47 kg

DRUGS (1)
  1. MIRENA IUD [Suspect]
     Indication: ENDOMETRIOSIS
     Dosage: every day
     Dates: start: 20090507, end: 20091011

REACTIONS (2)
  - Uterine perforation [None]
  - Device dislocation [None]
